FAERS Safety Report 4991213-9 (Version None)
Quarter: 2006Q2

REPORT INFORMATION
  Report Type: 
  Country: None (occurrence: None)
  Receive Date: 20060504
  Receipt Date: 20050609
  Transmission Date: 20061013
  Serious: Yes (Disabling)
  Sender: FDA-Public Use
  Company Number: US-ROCHE-407485

PATIENT
  Age: 21 Year
  Sex: Male
  Weight: 65.8 kg

DRUGS (7)
  1. ACCUTANE [Suspect]
     Indication: ACNE
     Route: 048
     Dates: start: 20021215, end: 20030615
  2. SULFASALAZINE [Concomitant]
     Indication: COLITIS
  3. CELEBREX [Concomitant]
     Indication: ARTHRITIS
  4. PRILOSEC [Concomitant]
  5. ADVIL [Concomitant]
  6. IBUPROFEN [Concomitant]
  7. MOTRIN [Concomitant]

REACTIONS (27)
  - ACUTE SINUSITIS [None]
  - ADJUSTMENT DISORDER WITH DEPRESSED MOOD [None]
  - AFFECT LABILITY [None]
  - AGGRESSION [None]
  - AGITATION [None]
  - ANGER [None]
  - ANXIETY [None]
  - BACK INJURY [None]
  - BLOOD ALBUMIN INCREASED [None]
  - BRONCHITIS [None]
  - COLITIS ULCERATIVE [None]
  - DELIRIUM [None]
  - DEPRESSION [None]
  - DRUG INEFFECTIVE [None]
  - DRY SKIN [None]
  - GASTROOESOPHAGEAL REFLUX DISEASE [None]
  - HEADACHE [None]
  - IMPULSIVE BEHAVIOUR [None]
  - JUVENILE ARTHRITIS [None]
  - LYMPHOCYTE COUNT DECREASED [None]
  - PANIC ATTACK [None]
  - PHARYNGOLARYNGEAL PAIN [None]
  - SUICIDAL IDEATION [None]
  - SUICIDE ATTEMPT [None]
  - TINEA PEDIS [None]
  - UNDERWEIGHT [None]
  - WHITE BLOOD CELL COUNT DECREASED [None]
